FAERS Safety Report 7647369-2 (Version None)
Quarter: 2011Q3

REPORT INFORMATION
  Report Type: 
  Country: None (occurrence: None)
  Receive Date: 20110801
  Receipt Date: 20110726
  Transmission Date: 20111222
  Serious: Yes (Hospitalization)
  Sender: FDA-Public Use
  Company Number: ES-B.I. PHARMACEUTICALS,INC./RIDGEFIELD-2011-DE-04289GD

PATIENT
  Sex: Male

DRUGS (4)
  1. NEVIRAPINE [Suspect]
     Indication: HIV TEST POSITIVE
     Dosage: 200 MG
  2. NEVIRAPINE [Suspect]
     Dosage: 400 MG
  3. NEVIRAPINE [Suspect]
  4. EMTRICITABINE/TENOFOVIR DISOPROXIL FUMARATE [Concomitant]
     Indication: HIV TEST POSITIVE

REACTIONS (7)
  - AGRANULOCYTOSIS [None]
  - BLOOD BILIRUBIN INCREASED [None]
  - DRUG HYPERSENSITIVITY [None]
  - PYREXIA [None]
  - COUGH [None]
  - ALANINE AMINOTRANSFERASE INCREASED [None]
  - RASH MORBILLIFORM [None]
